FAERS Safety Report 6409390-1 (Version None)
Quarter: 2009Q4

REPORT INFORMATION
  Report Type: 
  Country: None (occurrence: None)
  Receive Date: 20091021
  Receipt Date: 20091016
  Transmission Date: 20100525
  Serious: Yes (Hospitalization)
  Sender: FDA-Public Use
  Company Number: US-GILEAD-2009-0024885

PATIENT
  Sex: Male
  Weight: 86.4 kg

DRUGS (20)
  1. LETAIRIS [Suspect]
     Indication: PULMONARY ARTERIAL HYPERTENSION
     Route: 048
     Dates: start: 20090626
  2. PLAVIX [Concomitant]
  3. LISINOPRIL [Concomitant]
  4. BISOPROL FUM [Concomitant]
  5. SPIRIVA [Concomitant]
  6. ADVAIR DISKUS 100/50 [Concomitant]
  7. DIGOXIN [Concomitant]
  8. LIPITOR [Concomitant]
  9. TRIGLIDE [Concomitant]
  10. NOVOLOG MIX 70/30 [Concomitant]
  11. LANTUS [Concomitant]
  12. METFORMIN [Concomitant]
  13. ZETIA [Concomitant]
  14. MUCINEX [Concomitant]
  15. SENNA LAX [Concomitant]
  16. FELODIPINE [Concomitant]
  17. KLOR-CON [Concomitant]
  18. NEXIUM [Concomitant]
  19. MAGNESIUM [Concomitant]
  20. CALCIUM +D [Concomitant]

REACTIONS (1)
  - ANGINA PECTORIS [None]
